FAERS Safety Report 8264286-8 (Version None)
Quarter: 2012Q2

REPORT INFORMATION
  Report Type: 
  Country: None (occurrence: None)
  Receive Date: 20120403
  Receipt Date: 20120319
  Transmission Date: 20120825
  Serious: Yes (Death, Hospitalization)
  Sender: FDA-Public Use
  Company Number: 2012AL000027

PATIENT
  Age: 79 Year
  Sex: Female

DRUGS (10)
  1. NEURONTIN [Concomitant]
  2. LIDOCAINE [Concomitant]
  3. METOPROLOL TARTRATE [Concomitant]
  4. VALTREX [Concomitant]
  5. ZOLPIDEM [Concomitant]
  6. FOLOTYN [Suspect]
     Indication: PERIPHERAL T-CELL LYMPHOMA UNSPECIFIED
     Dosage: 37 MG;QW;IV
     Route: 042
     Dates: start: 20120104, end: 20120111
  7. ZOVIRAX [Concomitant]
  8. DIOVAN [Concomitant]
  9. HYDROXYZINE [Concomitant]
  10. TOVIAZ [Concomitant]

REACTIONS (4)
  - NEOPLASM PROGRESSION [None]
  - DYSPNOEA [None]
  - PERIPHERAL T-CELL LYMPHOMA UNSPECIFIED [None]
  - CHEST PAIN [None]
